FAERS Safety Report 24630740 (Version 1)
Quarter: 2024Q4

REPORT INFORMATION
  Report Type: Report from Study
  Country: US (occurrence: US)
  Receive Date: 20241118
  Receipt Date: 20241118
  Transmission Date: 20250115
  Serious: Yes (Death)
  Sender: DAIICHI
  Company Number: US-DSJP-DSU-2023-119631

PATIENT
  Age: 75 Year
  Sex: Male
  Weight: 59.456 kg

DRUGS (10)
  1. ENHERTU [Suspect]
     Active Substance: FAM-TRASTUZUMAB DERUXTECAN-NXKI
     Indication: Bladder cancer
     Dosage: UNK, ONCE EVERY 3 WK
     Route: 042
     Dates: start: 20221014, end: 20221014
  2. ENHERTU [Suspect]
     Active Substance: FAM-TRASTUZUMAB DERUXTECAN-NXKI
     Dosage: 250 MG, ONCE EVERY 3 WK
     Route: 042
     Dates: start: 20221018
  3. ENHERTU [Suspect]
     Active Substance: FAM-TRASTUZUMAB DERUXTECAN-NXKI
     Dosage: UNK, ONCE EVERY 3 WK
     Route: 042
     Dates: start: 20221019, end: 20221019
  4. ENHERTU [Suspect]
     Active Substance: FAM-TRASTUZUMAB DERUXTECAN-NXKI
     Dosage: 250 MG
     Route: 042
     Dates: start: 20221020, end: 20221020
  5. ENHERTU [Suspect]
     Active Substance: FAM-TRASTUZUMAB DERUXTECAN-NXKI
     Dosage: 394 MG, ONCE EVERY 3 WK
     Route: 042
  6. ENHERTU [Suspect]
     Active Substance: FAM-TRASTUZUMAB DERUXTECAN-NXKI
     Dosage: 285 MG, ONCE EVERY 3 WK
     Route: 042
     Dates: start: 20230515, end: 20230515
  7. ENHERTU [Suspect]
     Active Substance: FAM-TRASTUZUMAB DERUXTECAN-NXKI
     Dosage: 255 MG, ONCE EVERY 3 WK
     Route: 042
     Dates: start: 20231016, end: 20231016
  8. ENHERTU [Suspect]
     Active Substance: FAM-TRASTUZUMAB DERUXTECAN-NXKI
     Dosage: 200 MG, ONCE EVERY 3 WK
     Route: 042
     Dates: start: 20240531, end: 20240531
  9. ENHERTU [Suspect]
     Active Substance: FAM-TRASTUZUMAB DERUXTECAN-NXKI
     Dosage: 250 MG, ONCE EVERY 3 WK
     Route: 042
     Dates: start: 20240614, end: 20240614
  10. ENHERTU [Suspect]
     Active Substance: FAM-TRASTUZUMAB DERUXTECAN-NXKI
     Dosage: 250 MG
     Route: 042
     Dates: start: 20241017, end: 20241017

REACTIONS (10)
  - Death [Fatal]
  - Weight decreased [Unknown]
  - Weight increased [Unknown]
  - Weight increased [Not Recovered/Not Resolved]
  - Weight decreased [Not Recovered/Not Resolved]
  - Therapy change [Unknown]
  - Therapy change [Unknown]
  - Therapy change [Not Recovered/Not Resolved]
  - Off label use [Not Recovered/Not Resolved]
  - Inappropriate schedule of product administration [Recovered/Resolved]

NARRATIVE: CASE EVENT DATE: 20221014
